FAERS Safety Report 7634993-6 (Version None)
Quarter: 2011Q3

REPORT INFORMATION
  Report Type: 
  Country: None (occurrence: None)
  Receive Date: 20110726
  Receipt Date: 20110720
  Transmission Date: 20111222
  Serious: Yes (Hospitalization, Other)
  Sender: FDA-Public Use
  Company Number: CA-BAYER-2011-062209

PATIENT
  Age: 40 Year
  Sex: Female
  Weight: 59 kg

DRUGS (1)
  1. MIRENA [Suspect]
     Indication: MENORRHAGIA
     Dosage: 20 ?G/D, CONT
     Route: 015
     Dates: start: 20101129

REACTIONS (7)
  - HEADACHE [None]
  - ANAEMIA [None]
  - SPEECH DISORDER [None]
  - LACUNAR INFARCTION [None]
  - THROMBOTIC STROKE [None]
  - MENORRHAGIA [None]
  - DIZZINESS [None]
